FAERS Safety Report 4541020-6 (Version None)
Quarter: 2004Q4

REPORT INFORMATION
  Report Type: 
  Country: None (occurrence: None)
  Receive Date: 20041228
  Receipt Date: 20041215
  Transmission Date: 20050328
  Serious: No
  Sender: FDA-Public Use
  Company Number: B0361871A

PATIENT
  Age: 49 Year
  Sex: Male

DRUGS (6)
  1. EPIVIR [Suspect]
     Indication: HIV INFECTION
  2. ZIAGEN [Suspect]
     Indication: HIV INFECTION
  3. TIPRANAVIR (FORMULATION UNKNOWN) (TIPRANAVIR) [Suspect]
     Indication: HIV INFECTION
  4. RITONAVIR (FORMULATION UNKNOWN) (RITONAVIR) [Suspect]
     Indication: HIV INFECTION
  5. EFAVIRENZ (FORMULATION UNKNOWN) (EFAVIRENZ) [Suspect]
     Indication: HIV INFECTION
  6. TENOFOVIR DISOPROXIL FUMA (FORMULATION UNKNOWN) (TENOFOVIR DISOPROXIL [Suspect]
     Indication: HIV INFECTION

REACTIONS (3)
  - DISCOMFORT [None]
  - ERECTILE DYSFUNCTION [None]
  - LIPODYSTROPHY ACQUIRED [None]
